FAERS Safety Report 5415972-6 (Version None)
Quarter: 2007Q3

REPORT INFORMATION
  Report Type: 
  Country: None (occurrence: None)
  Receive Date: 20070815
  Receipt Date: 20070806
  Transmission Date: 20080115
  Serious: Yes (Hospitalization)
  Sender: FDA-Public Use
  Company Number: FR-PFIZER INC-2007065795

PATIENT
  Sex: Male

DRUGS (8)
  1. TAHOR [Suspect]
     Indication: DYSLIPIDAEMIA
     Route: 048
  2. PREVISCAN [Suspect]
     Indication: ATRIAL FIBRILLATION
     Route: 048
  3. KARDEGIC [Suspect]
     Route: 048
  4. CORDARONE [Suspect]
     Indication: ATRIAL FIBRILLATION
     Route: 048
  5. OMIX [Concomitant]
     Route: 048
  6. NEXIUM [Concomitant]
     Route: 048
  7. CARDENSIEL [Concomitant]
     Route: 048
  8. TRIATEC [Concomitant]
     Route: 048

REACTIONS (1)
  - SUBCUTANEOUS HAEMATOMA [None]
